FAERS Safety Report 22183307 (Version 1)
Quarter: 2023Q2

REPORT INFORMATION
  Report Type: Spontaneous
  Country: JP (occurrence: JP)
  Receive Date: 20230406
  Receipt Date: 20230406
  Transmission Date: 20230721
  Serious: Yes (Hospitalization)
  Sender: FDA-Public Use
  Company Number: JP-JNJFOC-20211100660

PATIENT
  Age: 10 Decade
  Sex: Male

DRUGS (4)
  1. ZYTIGA [Suspect]
     Active Substance: ABIRATERONE ACETATE
     Indication: Hormone-refractory prostate cancer
     Dosage: 2 HOURS AFTER BREAKFAST
     Route: 048
  2. ZYTIGA [Suspect]
     Active Substance: ABIRATERONE ACETATE
     Dosage: 10:00 AM, 14:00 PM
     Route: 048
     Dates: start: 20211028, end: 20211028
  3. ZYTIGA [Suspect]
     Active Substance: ABIRATERONE ACETATE
     Dosage: DOSE UNKNOWN
     Route: 048
     Dates: start: 20211030
  4. PREDNISOLONE [Concomitant]
     Active Substance: PREDNISOLONE
     Dosage: DOSE UNKNOWN
     Route: 065

REACTIONS (2)
  - Hospitalisation [Unknown]
  - Accidental overdose [Recovered/Resolved]

NARRATIVE: CASE EVENT DATE: 20211028
